FAERS Safety Report 21488638 (Version 1)
Quarter: 2022Q4

REPORT INFORMATION
  Report Type: Report from Study
  Country: DE (occurrence: DE)
  Receive Date: 20221021
  Receipt Date: 20221021
  Transmission Date: 20230112
  Serious: Yes (Hospitalization, Other)
  Sender: FDA-Public Use
  Company Number: DE-CELLTRION INC.-2022DE016555

PATIENT

DRUGS (17)
  1. TRUXIMA [Suspect]
     Active Substance: RITUXIMAB-ABBS
     Indication: Product used for unknown indication
     Dosage: 500 MILLIGRAM
     Dates: start: 201710
  2. MABTHERA [Suspect]
     Active Substance: RITUXIMAB
     Indication: Product used for unknown indication
     Dosage: 500 MILLIGRAM
     Dates: start: 201512
  3. MABTHERA [Suspect]
     Active Substance: RITUXIMAB
     Dosage: 500 MILLIGRAM
     Dates: start: 201607
  4. MABTHERA [Suspect]
     Active Substance: RITUXIMAB
     Dosage: 500 MILLIGRAM
     Dates: start: 201701
  5. RITUXIMAB [Suspect]
     Active Substance: RITUXIMAB
     Indication: Product used for unknown indication
     Dosage: 500 MILLIGRAM
     Dates: start: 201804
  6. RITUXIMAB [Suspect]
     Active Substance: RITUXIMAB
     Dosage: 500 MILLIGRAM
     Dates: start: 201811
  7. RITUXIMAB [Suspect]
     Active Substance: RITUXIMAB
     Dosage: 500 MILLIGRAM
     Dates: start: 201908
  8. METHOTREXATE SODIUM [Suspect]
     Active Substance: METHOTREXATE SODIUM
     Indication: Rheumatoid arthritis
     Dosage: 15 MILLIGRAM
     Dates: start: 20151215
  9. METHOTREXATE SODIUM [Suspect]
     Active Substance: METHOTREXATE SODIUM
     Dosage: 10 MILLIGRAM
     Dates: start: 20160315
  10. METHOTREXATE SODIUM [Suspect]
     Active Substance: METHOTREXATE SODIUM
     Dosage: 10 MILLIGRAM
     Dates: start: 20160602
  11. METHOTREXATE SODIUM [Suspect]
     Active Substance: METHOTREXATE SODIUM
     Dosage: 5 MILLIGRAM
     Dates: start: 20161215
  12. METHOTREXATE SODIUM [Suspect]
     Active Substance: METHOTREXATE SODIUM
     Dosage: 5 MILLIGRAM
     Dates: start: 20170627
  13. METHOTREXATE SODIUM [Suspect]
     Active Substance: METHOTREXATE SODIUM
     Dosage: 5 MILLIGRAM
     Dates: start: 20171215
  14. METHOTREXATE SODIUM [Suspect]
     Active Substance: METHOTREXATE SODIUM
     Dosage: 5 MILLIGRAM
     Dates: start: 20180511
  15. METHOTREXATE SODIUM [Suspect]
     Active Substance: METHOTREXATE SODIUM
     Dosage: 5 MILLIGRAM
     Dates: start: 20181116
  16. METHOTREXATE SODIUM [Suspect]
     Active Substance: METHOTREXATE SODIUM
     Dosage: UNK
     Dates: start: 20190606
  17. METHOTREXATE SODIUM [Suspect]
     Active Substance: METHOTREXATE SODIUM
     Dosage: 2.5 MILLIGRAM
     Dates: start: 20191211

REACTIONS (3)
  - Rheumatoid arthritis [Recovered/Resolved]
  - Epistaxis [Unknown]
  - Cough [Unknown]

NARRATIVE: CASE EVENT DATE: 20190815
